FAERS Safety Report 15813224 (Version 1)
Quarter: 2019Q1

REPORT INFORMATION
  Report Type: Spontaneous
  Country: US (occurrence: US)
  Receive Date: 20190111
  Receipt Date: 20190111
  Transmission Date: 20190417
  Serious: Yes (Death)
  Sender: FDA-Public Use
  Company Number: None

PATIENT
  Age: 26 Year
  Sex: Female

DRUGS (11)
  1. MULTIPLE VIT [Concomitant]
  2. DIGOXIN. [Concomitant]
     Active Substance: DIGOXIN
  3. ADCIRCA [Concomitant]
     Active Substance: TADALAFIL
  4. TYVASO [Concomitant]
     Active Substance: TREPROSTINIL
  5. TADALAFIL. [Suspect]
     Active Substance: TADALAFIL
     Indication: PULMONARY ARTERIAL HYPERTENSION
     Route: 048
     Dates: start: 20181004
  6. ADCIRCA [Suspect]
     Active Substance: TADALAFIL
     Indication: PULMONARY ARTERIAL HYPERTENSION
     Route: 048
     Dates: start: 20160223
  7. ASPIRIN. [Concomitant]
     Active Substance: ASPIRIN
  8. LETAIRIS [Concomitant]
     Active Substance: AMBRISENTAN
  9. VENTAVIS [Concomitant]
     Active Substance: ILOPROST
  10. PROGESTERONE. [Concomitant]
     Active Substance: PROGESTERONE
  11. PROVERA [Concomitant]
     Active Substance: MEDROXYPROGESTERONE ACETATE

REACTIONS (1)
  - Death [None]

NARRATIVE: CASE EVENT DATE: 20181218
